FAERS Safety Report 22219616 (Version 1)
Quarter: 2023Q2

REPORT INFORMATION
  Report Type: Other
  Country: None (occurrence: BE)
  Receive Date: 20230417
  Receipt Date: 20230417
  Transmission Date: 20230721
  Serious: Yes (Hospitalization, Other)
  Sender: FDA-Public Use
  Company Number: BE-Breckenridge Pharmaceutical, Inc.-2140464

PATIENT
  Age: 3 Month
  Sex: Female

DRUGS (1)
  1. OMEPRAZOLE [Suspect]
     Active Substance: OMEPRAZOLE
     Route: 048

REACTIONS (3)
  - Cushing^s syndrome [Recovered/Resolved]
  - Adrenocortical insufficiency neonatal [Recovered/Resolved]
  - Product compounding quality issue [Unknown]
